FAERS Safety Report 12062892 (Version 1)
Quarter: 2016Q1

REPORT INFORMATION
  Report Type: Spontaneous
  Country: US (occurrence: US)
  Receive Date: 20160210
  Receipt Date: 20160210
  Transmission Date: 20160526
  Serious: No
  Sender: FDA-Public Use
  Company Number: US-ALLERGAN-1505836US

PATIENT
  Age: 56 Year
  Sex: Male

DRUGS (3)
  1. BOTOX [Suspect]
     Active Substance: ONABOTULINUMTOXINA
     Dosage: 60 UNITS, SINGLE
  2. BOTOX [Suspect]
     Active Substance: ONABOTULINUMTOXINA
     Indication: MIGRAINE
     Dosage: 60 UNITS, SINGLE
     Dates: start: 20150325, end: 20150325
  3. KLONOPIN [Concomitant]
     Active Substance: CLONAZEPAM
     Indication: MIGRAINE
     Dosage: UNK UNK, QHS
     Route: 048

REACTIONS (5)
  - Muscle spasms [Not Recovered/Not Resolved]
  - Somnolence [Unknown]
  - Rash macular [Recovering/Resolving]
  - Chest pain [Not Recovered/Not Resolved]
  - Drug ineffective [Unknown]

NARRATIVE: CASE EVENT DATE: 201503
